FAERS Safety Report 11787597 (Version 1)
Quarter: 2015Q4

REPORT INFORMATION
  Report Type: Spontaneous
  Country: GB (occurrence: GB)
  Receive Date: 20151130
  Receipt Date: 20151130
  Transmission Date: 20160305
  Serious: Yes (Hospitalization, Other)
  Sender: FDA-Public Use
  Company Number: GB-SA-2015SA190193

PATIENT
  Age: 86 Year
  Sex: Male
  Weight: 55 kg

DRUGS (6)
  1. ATORVASTATIN [Concomitant]
     Active Substance: ATORVASTATIN
  2. FUROSEMIDE SODIUM [Concomitant]
     Active Substance: FUROSEMIDE SODIUM
  3. TRIMETHOPRIM. [Suspect]
     Active Substance: TRIMETHOPRIM
     Indication: URINARY TRACT INFECTION
     Route: 048
     Dates: start: 20151106, end: 20151109
  4. PARACETAMOL [Concomitant]
     Active Substance: ACETAMINOPHEN
  5. ENOXAPARIN SODIUM. [Suspect]
     Active Substance: ENOXAPARIN SODIUM
     Indication: EMBOLISM VENOUS
     Route: 058
     Dates: start: 20151106, end: 20151109
  6. RAMIPRIL. [Concomitant]
     Active Substance: RAMIPRIL
     Dosage: STOPPED BEFORE PARACETAMOL RAISED.

REACTIONS (1)
  - Hyperkalaemia [Recovering/Resolving]
